FAERS Safety Report 11185985 (Version 1)
Quarter: 2015Q2

REPORT INFORMATION
  Report Type: Spontaneous
  Country: US (occurrence: US)
  Receive Date: 20150612
  Receipt Date: 20150612
  Transmission Date: 20150821
  Serious: Yes (Other)
  Sender: FDA-Public Use
  Company Number: PHEH2015US010945

PATIENT
  Sex: Male

DRUGS (1)
  1. RECLAST [Suspect]
     Active Substance: ZOLEDRONIC ACID
     Indication: PRODUCT USED FOR UNKNOWN INDICATION
     Route: 065

REACTIONS (9)
  - Pollakiuria [Unknown]
  - Tremor [Unknown]
  - Sluggishness [Unknown]
  - Dysgraphia [Unknown]
  - Dyspnoea [Unknown]
  - Nystagmus [Unknown]
  - Muscle twitching [Unknown]
  - Fatigue [Unknown]
  - Central nervous system lesion [Unknown]
